FAERS Safety Report 5606473-0 (Version None)
Quarter: 2008Q1

REPORT INFORMATION
  Report Type: 
  Country: None (occurrence: None)
  Receive Date: 20080129
  Receipt Date: 20080122
  Transmission Date: 20080703
  Serious: Yes (Hospitalization)
  Sender: FDA-Public Use
  Company Number: LB-MERCK-0801USA04626

PATIENT
  Age: 78 Year
  Sex: Male

DRUGS (9)
  1. FOSAMAX [Suspect]
     Route: 048
  2. RABEPRAZOLE SODIUM [Concomitant]
     Route: 065
  3. SINEMET [Concomitant]
     Route: 065
  4. PROZAC [Concomitant]
     Route: 065
  5. GLUCOVANCE [Concomitant]
     Route: 065
  6. REMERON [Concomitant]
     Route: 065
  7. ASPIRIN [Concomitant]
     Route: 048
  8. ZESTRIL [Concomitant]
     Route: 048
  9. CRESTOR [Concomitant]
     Route: 048

REACTIONS (2)
  - BACK PAIN [None]
  - HYPERTENSION [None]
